FAERS Safety Report 10216317 (Version 2)
Quarter: 2014Q3

REPORT INFORMATION
  Report Type: Spontaneous
  Country: JP (occurrence: JP)
  Receive Date: 20140604
  Receipt Date: 20140804
  Transmission Date: 20150326
  Serious: Yes (Life-Threatening, Hospitalization, Other)
  Sender: FDA-Public Use
  Company Number: JP-ASTRAZENECA-2014SE38578

PATIENT
  Age: 39 Year
  Sex: Female
  Weight: 43 kg

DRUGS (3)
  1. DIAZEPAM. [Suspect]
     Active Substance: DIAZEPAM
  2. BETAMETHASONE [Suspect]
     Active Substance: BETAMETHASONE
     Indication: MATERNAL THERAPY TO ENHANCE FOETAL LUNG MATURITY
  3. DIPRIVAN [Suspect]
     Active Substance: PROPOFOL
     Indication: SEDATION
     Route: 042

REACTIONS (6)
  - Ruptured cerebral aneurysm [Unknown]
  - Exposure during pregnancy [Unknown]
  - Coma [Recovered/Resolved]
  - Blood pressure increased [Unknown]
  - Respiratory failure [Unknown]
  - Pupils unequal [Unknown]
